FAERS Safety Report 11877966 (Version 1)
Quarter: 2015Q4

REPORT INFORMATION
  Report Type: Spontaneous
  Country: BR (occurrence: BR)
  Receive Date: 20151230
  Receipt Date: 20151230
  Transmission Date: 20160305
  Serious: Yes (Other)
  Sender: FDA-Public Use
  Company Number: BR-SUN PHARMACEUTICAL INDUSTRIES LTD-2015R5-108552

PATIENT
  Sex: Male
  Weight: 72 kg

DRUGS (1)
  1. ESOMEPRAZOLE [Suspect]
     Active Substance: ESOMEPRAZOLE
     Indication: OESOPHAGITIS
     Dosage: 40 MG, QD
     Route: 048
     Dates: start: 201509, end: 20151214

REACTIONS (5)
  - Pain [Recovering/Resolving]
  - Pelvic pain [Recovering/Resolving]
  - Pollakiuria [Recovering/Resolving]
  - Urine output decreased [Recovering/Resolving]
  - Urethral pain [Recovering/Resolving]

NARRATIVE: CASE EVENT DATE: 2015
